FAERS Safety Report 5871845-6 (Version None)
Quarter: 2008Q3

REPORT INFORMATION
  Report Type: 
  Country: None (occurrence: None)
  Receive Date: 20080904
  Receipt Date: 20080904
  Transmission Date: 20090109
  Serious: Yes (Life-Threatening, Hospitalization)
  Sender: FDA-Public Use
  Company Number: None

PATIENT
  Age: 58 Year
  Sex: Male
  Weight: 106.5953 kg

DRUGS (1)
  1. MELOXICAM [Suspect]
     Indication: BACK PAIN
     Dosage: 1 TABLET EVERY DAY
     Dates: start: 20080723, end: 20080824

REACTIONS (3)
  - PULMONARY ARTERY THROMBOSIS [None]
  - PULMONARY THROMBOSIS [None]
  - THROMBOSIS [None]
